FAERS Safety Report 4357358-1 (Version None)
Quarter: 2004Q2

REPORT INFORMATION
  Report Type: 
  Country: None (occurrence: None)
  Receive Date: 20040513
  Receipt Date: 20040506
  Transmission Date: 20050107
  Serious: Yes (Other)
  Sender: FDA-Public Use
  Company Number: 200413494US

PATIENT
  Age: 19 Year
  Sex: Male

DRUGS (2)
  1. LANTUS [Suspect]
     Indication: DIABETES MELLITUS NON-INSULIN-DEPENDENT
     Dosage: DOSE UNIT: UNITS
     Dates: start: 20040503
  2. HUMALOG [Concomitant]
     Dosage: DOSE: NOT PROVIDED

REACTIONS (4)
  - DIFFICULTY IN WALKING [None]
  - INJECTION SITE INFECTION [None]
  - JOINT RANGE OF MOTION DECREASED [None]
  - PHARMACEUTICAL PRODUCT COMPLAINT [None]
